FAERS Safety Report 9826401 (Version 1)
Quarter: 2014Q1

REPORT INFORMATION
  Report Type: Spontaneous
  Country: US (occurrence: US)
  Receive Date: 20140117
  Receipt Date: 20140117
  Transmission Date: 20141002
  Serious: No
  Sender: FDA-Public Use
  Company Number: US-BIOGENIDEC-2014BI001331

PATIENT
  Sex: Female

DRUGS (6)
  1. TECFIDERA [Suspect]
     Indication: MULTIPLE SCLEROSIS
     Route: 048
     Dates: start: 201311
  2. CIPRO [Concomitant]
  3. TURMERIC [Concomitant]
  4. VITAMIN D [Concomitant]
  5. FISH OIL [Concomitant]
  6. VITAMIN B-12 [Concomitant]

REACTIONS (2)
  - Decreased interest [Unknown]
  - Anhedonia [Unknown]
